FAERS Safety Report 8407001-7 (Version None)
Quarter: 2012Q2

REPORT INFORMATION
  Report Type: 
  Country: None (occurrence: None)
  Receive Date: 20120604
  Receipt Date: 20120531
  Transmission Date: 20120825
  Serious: Yes (Hospitalization)
  Sender: FDA-Public Use
  Company Number: IT-ROCHE-1074215

PATIENT
  Sex: Female

DRUGS (6)
  1. LEVOTHYROXINE SODIUM [Concomitant]
     Dates: start: 20120101, end: 20120510
  2. ACETAMINOPHEN [Concomitant]
     Route: 048
     Dates: start: 20120510, end: 20120510
  3. KEPPRA [Concomitant]
     Route: 048
     Dates: start: 20120101, end: 20120510
  4. METHYLPREDNISOLONE [Concomitant]
     Route: 042
     Dates: start: 20120510, end: 20120510
  5. MABTHERA [Suspect]
     Indication: NON-HODGKIN'S LYMPHOMA
     Route: 042
     Dates: start: 20120510, end: 20120510
  6. TRIMETON [Concomitant]
     Route: 030
     Dates: start: 20120510, end: 20120510

REACTIONS (4)
  - TREMOR [None]
  - PYREXIA [None]
  - BACK PAIN [None]
  - RASH [None]
